FAERS Safety Report 4353244-1 (Version None)
Quarter: 2004Q2

REPORT INFORMATION
  Report Type: 
  Country: None (occurrence: None)
  Receive Date: 20040429
  Receipt Date: 20040122
  Transmission Date: 20050107
  Serious: Yes (Death)
  Sender: FDA-Public Use
  Company Number: REL-RIR-112

PATIENT
  Age: 46 Year
  Sex: Male

DRUGS (2)
  1. RYTHMOL [Suspect]
     Indication: POISONING DELIBERATE
  2. ETHANOL [Suspect]

REACTIONS (2)
  - OVERDOSE [None]
  - POISONING DELIBERATE [None]
